FAERS Safety Report 11289647 (Version 3)
Quarter: 2017Q1

REPORT INFORMATION
  Report Type: Report from Study
  Country: US (occurrence: US)
  Receive Date: 20150721
  Receipt Date: 20170210
  Transmission Date: 20170428
  Serious: Yes (Other)
  Sender: FDA-Public Use
  Company Number: US-BAXTER-2015BAX038402

PATIENT
  Age: 68 Year
  Sex: Male
  Weight: 96 kg

DRUGS (39)
  1. CYCLOPHOSPHAMIDE FOR INJECTION, USP [Suspect]
     Active Substance: CYCLOPHOSPHAMIDE
     Indication: ACUTE LYMPHOCYTIC LEUKAEMIA
     Dosage: 4 CYCLES MINI-HYPER CVAD
     Route: 065
  2. CYTARABINE. [Suspect]
     Active Substance: CYTARABINE
     Indication: ACUTE LYMPHOCYTIC LEUKAEMIA
     Dosage: MINI-HYPER CVAD CYCLES 1-3
     Route: 042
  3. CASPOFUNGIN [Concomitant]
     Active Substance: CASPOFUNGIN
     Indication: INFECTION PROPHYLAXIS
     Route: 042
  4. PENTAMIDINE [Concomitant]
     Active Substance: PENTAMIDINE
     Indication: ANTIFUNGAL PROPHYLAXIS
     Route: 042
  5. MESNA FOR INJECTION - 3 GRAM [Suspect]
     Active Substance: MESNA
     Indication: ACUTE LYMPHOCYTIC LEUKAEMIA
     Dosage: 4 CYCLES MINI-HYPER CVAD
     Route: 065
  6. METHOTREXATE. [Suspect]
     Active Substance: METHOTREXATE
     Dosage: REGIMEN#4, SINGLE
     Route: 042
     Dates: start: 20150419, end: 20150419
  7. NORVASC [Concomitant]
     Active Substance: AMLODIPINE BESYLATE
     Indication: HYPERTENSION
     Route: 048
  8. LASIX [Concomitant]
     Active Substance: FUROSEMIDE
     Indication: FLUID RETENTION
     Route: 048
  9. KETOCONAZOLE. [Concomitant]
     Active Substance: KETOCONAZOLE
     Indication: RASH
     Dosage: TO AFFECTED AREA
     Route: 065
  10. TOPROL XL [Concomitant]
     Active Substance: METOPROLOL SUCCINATE
     Indication: HYPERTENSION
     Route: 048
  11. VALTREX [Concomitant]
     Active Substance: VALACYCLOVIR HYDROCHLORIDE
     Indication: INFECTION PROPHYLAXIS
     Route: 048
  12. INOTUZUMAB OZOGAMICIN [Suspect]
     Active Substance: INOTUZUMAB OZOGAMICIN
     Dosage: DAY 3, CYCLE 4
     Route: 042
     Dates: start: 20150223
  13. VINCRISTINE [Suspect]
     Active Substance: VINCRISTINE
     Indication: ACUTE LYMPHOCYTIC LEUKAEMIA
     Dosage: 4 CYCLES MINI-HYPER CVAD
     Route: 065
  14. METHOTREXATE. [Suspect]
     Active Substance: METHOTREXATE
     Dosage: REGIMEN#3, SINGLE
     Route: 042
     Dates: start: 20150416, end: 20150416
  15. CYTARABINE. [Suspect]
     Active Substance: CYTARABINE
     Dosage: MINI-HYPER CVAD CYCLE 4 DAY 2, 0.5 G/M2
     Route: 042
     Dates: start: 20150222
  16. RITUXIMAB [Suspect]
     Active Substance: RITUXIMAB
     Indication: ACUTE LYMPHOCYTIC LEUKAEMIA
     Dosage: DAY 2 AND DAY 7, CYCLES 1-3
     Route: 042
     Dates: start: 20141113
  17. PEPCID [Concomitant]
     Active Substance: FAMOTIDINE
     Indication: GASTROOESOPHAGEAL REFLUX DISEASE
     Route: 048
  18. MAGNESIUM [Concomitant]
     Active Substance: MAGNESIUM
     Indication: MINERAL SUPPLEMENTATION
     Route: 042
  19. METHOTREXATE. [Suspect]
     Active Substance: METHOTREXATE
     Dosage: DAY 1, MINI-HYPER CVAD CYCLE 4, REGIMEN#2
     Route: 042
     Dates: start: 20150221
  20. CELLCEPT [Concomitant]
     Active Substance: MYCOPHENOLATE MOFETIL\MYCOPHENOLATE MOFETIL HYDROCHLORIDE
     Indication: PROPHYLAXIS AGAINST GRAFT VERSUS HOST DISEASE
     Route: 048
  21. ACTIGALL [Concomitant]
     Active Substance: URSODIOL
     Indication: PROPHYLAXIS
     Route: 048
     Dates: start: 20150406
  22. ALLOPURINOL. [Concomitant]
     Active Substance: ALLOPURINOL
     Indication: PROPHYLAXIS
     Route: 048
  23. ASPIRIN. [Concomitant]
     Active Substance: ASPIRIN
     Indication: CARDIOVASCULAR EVENT PROPHYLAXIS
     Route: 048
  24. PLAVIX [Concomitant]
     Active Substance: CLOPIDOGREL BISULFATE
     Indication: CARDIOVASCULAR EVENT PROPHYLAXIS
     Route: 048
  25. TACROLIMUS. [Concomitant]
     Active Substance: TACROLIMUS
     Indication: PROPHYLAXIS AGAINST GRAFT VERSUS HOST DISEASE
     Route: 048
  26. BUSULFAN. [Suspect]
     Active Substance: BUSULFAN
     Indication: BONE MARROW CONDITIONING REGIMEN
     Dosage: DAYS 1-4
     Route: 042
     Dates: start: 20150407, end: 20150410
  27. METHOTREXATE. [Suspect]
     Active Substance: METHOTREXATE
     Indication: ACUTE LYMPHOCYTIC LEUKAEMIA
     Dosage: DAY 1, MINI-HYPER CVAD CYCLES 1-3
     Route: 042
  28. METHOTREXATE. [Suspect]
     Active Substance: METHOTREXATE
     Dosage: REGIMEN#5, SINGLE
     Route: 042
     Dates: start: 20150424, end: 20150424
  29. RITUXIMAB [Suspect]
     Active Substance: RITUXIMAB
     Dosage: DAY 2, CYCLE 4
     Route: 042
     Dates: start: 20150222
  30. DEXAMETHASONE. [Suspect]
     Active Substance: DEXAMETHASONE
     Indication: ACUTE LYMPHOCYTIC LEUKAEMIA
     Dosage: 4 CYCLES MINI-HYPER CVAD
     Route: 065
  31. INOTUZUMAB OZOGAMICIN [Suspect]
     Active Substance: INOTUZUMAB OZOGAMICIN
     Indication: ACUTE LYMPHOCYTIC LEUKAEMIA
     Dosage: DAY 3, CYCLES 1-3
     Route: 042
     Dates: start: 20141114
  32. FLUDARABINE [Suspect]
     Active Substance: FLUDARABINE PHOSPHATE
     Indication: BONE MARROW CONDITIONING REGIMEN
     Dosage: DAYS 1-4
     Route: 042
     Dates: start: 20150407, end: 20150410
  33. METHOTREXATE. [Suspect]
     Active Substance: METHOTREXATE
     Dosage: DAY 1, MINI-HYPER CVAD CYCLE 4
     Route: 042
     Dates: start: 20150221
  34. CYTARABINE. [Suspect]
     Active Substance: CYTARABINE
     Dosage: MINI-HYPER CVAD CYCLE 4 DAY 4, 0.5 G/M2
     Route: 042
     Dates: start: 20150224
  35. PEGFILGRASTIM [Suspect]
     Active Substance: PEGFILGRASTIM
     Dosage: MINI-HYPER CVAD, CYCLE 4
     Route: 058
     Dates: start: 20150225
  36. RITUXIMAB [Suspect]
     Active Substance: RITUXIMAB
     Dosage: DAY 7, CYCLE 4
     Route: 042
     Dates: start: 20150227
  37. NYSTATIN. [Concomitant]
     Active Substance: NYSTATIN
     Indication: CANDIDA INFECTION
     Dosage: SUSPENSION
     Route: 048
  38. PEGFILGRASTIM [Suspect]
     Active Substance: PEGFILGRASTIM
     Indication: ACUTE LYMPHOCYTIC LEUKAEMIA
     Dosage: MINI-HYPER CVAD, CYCLES 1-3
     Route: 058
  39. ULTRAM [Concomitant]
     Active Substance: TRAMADOL HYDROCHLORIDE
     Indication: PAIN
     Dosage: EVERY 6 HOURS
     Route: 048

REACTIONS (1)
  - Venoocclusive liver disease [Not Recovered/Not Resolved]

NARRATIVE: CASE EVENT DATE: 20150526
